FAERS Safety Report 4829369-0 (Version None)
Quarter: 2005Q4

REPORT INFORMATION
  Report Type: 
  Country: None (occurrence: None)
  Receive Date: 20051028
  Receipt Date: 20050817
  Transmission Date: 20060501
  Serious: No
  Sender: FDA-Public Use
  Company Number: COT_0191_2005

PATIENT
  Age: 45 Year
  Sex: Male
  Weight: 146.9654 kg

DRUGS (10)
  1. VENTAVIS [Suspect]
     Indication: PULMONARY HYPERTENSION
     Dosage: 2.5 MCG VARIABLE IH
     Route: 055
     Dates: start: 20050715
  2. VENTAVIS [Suspect]
     Indication: PULMONARY HYPERTENSION
     Dosage: 2.5 VAR VARIABLE IH
     Route: 055
     Dates: start: 20050715
  3. TRACLEER [Concomitant]
  4. CARDIZEM [Concomitant]
  5. SILDENAFIL [Concomitant]
  6. PROTONIX [Concomitant]
  7. ALBUTEROL [Concomitant]
  8. OXYGEN [Concomitant]
  9. COUMADIN [Concomitant]
  10. ZYLOPRIM [Concomitant]

REACTIONS (4)
  - CHILLS [None]
  - DYSPNOEA EXACERBATED [None]
  - FATIGUE [None]
  - NAUSEA [None]
